FAERS Safety Report 7773662-9 (Version None)
Quarter: 2011Q3

REPORT INFORMATION
  Report Type: 
  Country: None (occurrence: None)
  Receive Date: 20110923
  Receipt Date: 20110915
  Transmission Date: 20111222
  Serious: Yes (Hospitalization)
  Sender: FDA-Public Use
  Company Number: DE-BRISTOL-MYERS SQUIBB COMPANY-16086019

PATIENT
  Age: 62 Year
  Sex: Male
  Weight: 72 kg

DRUGS (4)
  1. DOCETAXEL [Suspect]
     Indication: HEAD AND NECK CANCER
     Dates: start: 20110713
  2. CETUXIMAB [Suspect]
     Indication: HEAD AND NECK CANCER
     Dates: start: 20110713
  3. CISPLATIN [Suspect]
     Indication: HEAD AND NECK CANCER
     Dates: start: 20110713
  4. FLUOROURACIL [Suspect]
     Indication: HEAD AND NECK CANCER
     Dates: start: 20110713

REACTIONS (1)
  - DEVICE DISLOCATION [None]
